FAERS Safety Report 18644138 (Version 7)
Quarter: 2021Q2

REPORT INFORMATION
  Report Type: Spontaneous
  Country: IN (occurrence: IN)
  Receive Date: 20201221
  Receipt Date: 20210601
  Transmission Date: 20210717
  Serious: Yes (Other)
  Sender: FDA-Public Use
  Company Number: IN-PFIZER INC-2020499186

PATIENT
  Age: 45 Year
  Sex: Female
  Weight: 72.2 kg

DRUGS (6)
  1. PALBACE [Suspect]
     Active Substance: PALBOCICLIB
     Indication: BREAST CANCER METASTATIC
     Dosage: 125 MG, 1X/DAY
     Route: 048
     Dates: start: 20200921
  2. SHELCAL [CALCIUM CARBONATE;COLECALCIFEROL] [Concomitant]
     Dosage: 500 MG, 2X/DAY
  3. ALPRAX [Concomitant]
     Dosage: 0.5 MG, AT BED TIME
  4. OSTEOPHOS [Concomitant]
     Dosage: 70 MG, WEEKLY
  5. LETRONAT [Concomitant]
     Dosage: 2.5 MG, DAILY
  6. STAMLO [Concomitant]
     Active Substance: AMLODIPINE BESYLATE
     Dosage: 0.5 MG, 1X/DAY

REACTIONS (4)
  - Neoplasm progression [Unknown]
  - Facial paralysis [Unknown]
  - Depression [Unknown]
  - Heart rate increased [Unknown]

NARRATIVE: CASE EVENT DATE: 20210309
